FAERS Safety Report 5500048-X (Version None)
Quarter: 2007Q4

REPORT INFORMATION
  Report Type: 
  Country: None (occurrence: None)
  Receive Date: 20071024
  Receipt Date: 20071009
  Transmission Date: 20080405
  Serious: Yes (Other)
  Sender: FDA-Public Use
  Company Number: S07-FRA-05541-01

PATIENT
  Age: 35 Year
  Sex: Female

DRUGS (5)
  1. CITALOPRAM HYDROBROMIDE [Suspect]
     Indication: POSTPARTUM DEPRESSION
     Dosage: 20 MG QD PO
     Route: 048
  2. CITALOPRAM HYDROBROMIDE [Suspect]
     Indication: POSTPARTUM DEPRESSION
  3. OXAZEPAM [Concomitant]
  4. LEXOMIL (BROMAZEPAM) [Concomitant]
  5. TERCIAN(CYAMEMAZINE) [Suspect]
     Dosage: 120MG QD PO
     Route: 048

REACTIONS (1)
  - EPILEPSY [None]
